FAERS Safety Report 21587076 (Version 1)
Quarter: 2022Q4

REPORT INFORMATION
  Report Type: Spontaneous
  Country: US (occurrence: US)
  Receive Date: 20221114
  Receipt Date: 20221114
  Transmission Date: 20230113
  Serious: Yes (Other)
  Sender: FDA-Public Use
  Company Number: US-BEH-2022151799

PATIENT
  Sex: Male

DRUGS (8)
  1. IDELVION [Suspect]
     Active Substance: COAGULATION FACTOR IX RECOMBINANT HUMAN
     Indication: Factor IX deficiency
     Dosage: 3636 INTERNATIONAL UNIT, QW
     Route: 042
     Dates: start: 202206
  2. IDELVION [Suspect]
     Active Substance: COAGULATION FACTOR IX RECOMBINANT HUMAN
     Indication: Factor IX deficiency
     Dosage: 3636 INTERNATIONAL UNIT, QW
     Route: 042
     Dates: start: 202206
  3. IDELVION [Suspect]
     Active Substance: COAGULATION FACTOR IX RECOMBINANT HUMAN
     Indication: Haemorrhage
     Dosage: 3636 INTERNATIONAL UNIT, PRN (EVERY 48-72 HRS)
     Route: 042
     Dates: start: 202206
  4. IDELVION [Suspect]
     Active Substance: COAGULATION FACTOR IX RECOMBINANT HUMAN
     Indication: Haemorrhage
     Dosage: 3636 INTERNATIONAL UNIT, PRN (EVERY 48-72 HRS)
     Route: 042
     Dates: start: 202206
  5. IDELVION [Suspect]
     Active Substance: COAGULATION FACTOR IX RECOMBINANT HUMAN
     Indication: Traumatic haemorrhage
     Dosage: 9090 INTERNATIONAL UNIT, PRN (EVERY 48-72 HRS)
     Route: 042
     Dates: start: 202206
  6. IDELVION [Suspect]
     Active Substance: COAGULATION FACTOR IX RECOMBINANT HUMAN
     Indication: Traumatic haemorrhage
     Dosage: 9090 INTERNATIONAL UNIT, PRN (EVERY 48-72 HRS)
     Route: 042
     Dates: start: 202206
  7. IDELVION [Suspect]
     Active Substance: COAGULATION FACTOR IX RECOMBINANT HUMAN
     Indication: Prophylaxis
  8. IDELVION [Suspect]
     Active Substance: COAGULATION FACTOR IX RECOMBINANT HUMAN
     Indication: Prophylaxis

REACTIONS (9)
  - Accident [Unknown]
  - Spinal compression fracture [Unknown]
  - Traumatic haemorrhage [Unknown]
  - Lower limb fracture [Unknown]
  - Traumatic fracture [Unknown]
  - Upper limb fracture [Unknown]
  - Head injury [Unknown]
  - Contusion [Unknown]
  - Rotator cuff syndrome [Unknown]
